FAERS Safety Report 4375411-3 (Version None)
Quarter: 2004Q2

REPORT INFORMATION
  Report Type: 
  Country: None (occurrence: None)
  Receive Date: 20040603
  Receipt Date: 20040521
  Transmission Date: 20050107
  Serious: No
  Sender: FDA-Public Use
  Company Number: CART-10277

PATIENT
  Age: 30 Year
  Sex: Female
  Weight: 72.5755 kg

DRUGS (1)
  1. CARTICEL [Suspect]
     Indication: ARTHROPATHY
     Dosage: 1 NA ONCE IS
     Dates: start: 20010213, end: 20010213

REACTIONS (8)
  - CHONDROMALACIA [None]
  - GRAFT COMPLICATION [None]
  - JOINT ADHESION [None]
  - JOINT LOCK [None]
  - OSTEOARTHRITIS [None]
  - PAIN EXACERBATED [None]
  - SWELLING [None]
  - WEIGHT INCREASED [None]
